FAERS Safety Report 7329755-3 (Version None)
Quarter: 2011Q1

REPORT INFORMATION
  Report Type: 
  Country: None (occurrence: None)
  Receive Date: 20110303
  Receipt Date: 20110225
  Transmission Date: 20110831
  Serious: Yes (Other)
  Sender: FDA-Public Use
  Company Number: US-PFIZER INC-2011042722

PATIENT
  Sex: Female

DRUGS (2)
  1. ALPHAGAN [Concomitant]
  2. XALATAN [Suspect]
     Dosage: ONE DROP PER EYE PER DAY

REACTIONS (1)
  - INTRAOCULAR PRESSURE TEST ABNORMAL [None]
